FAERS Safety Report 21967623 (Version 3)
Quarter: 2025Q2

REPORT INFORMATION
  Report Type: Spontaneous
  Country: ES (occurrence: ES)
  Receive Date: 20230208
  Receipt Date: 20250605
  Transmission Date: 20250716
  Serious: Yes (Death, Life-Threatening, Hospitalization, Other)
  Sender: PFIZER
  Company Number: ES-Accord-298394

PATIENT
  Age: 60 Year
  Sex: Male
  Weight: 49.3 kg

DRUGS (2)
  1. CARBOPLATIN [Suspect]
     Active Substance: CARBOPLATIN
     Indication: Anal squamous cell carcinoma
     Dates: start: 20221223, end: 20221223
  2. PACLITAXEL [Suspect]
     Active Substance: PACLITAXEL
     Indication: Anal squamous cell carcinoma
     Dates: start: 20221223, end: 20221230

REACTIONS (2)
  - Pancytopenia [Fatal]
  - Off label use [Unknown]

NARRATIVE: CASE EVENT DATE: 20230105
